FAERS Safety Report 15580503 (Version 2)
Quarter: 2018Q4

REPORT INFORMATION
  Report Type: Report from Study
  Country: US (occurrence: US)
  Receive Date: 20181102
  Receipt Date: 20181210
  Transmission Date: 20190205
  Serious: Yes (Hospitalization, Other)
  Sender: FDA-Public Use
  Company Number: US-ACTELION-A-US2018-180964

PATIENT
  Age: 81 Year
  Sex: Female

DRUGS (1)
  1. OPSUMIT [Suspect]
     Active Substance: MACITENTAN
     Indication: PULMONARY ARTERIAL HYPERTENSION
     Dosage: 10 MG, QD
     Route: 048
     Dates: start: 20180117

REACTIONS (7)
  - Pneumonia [Recovering/Resolving]
  - Dialysis [Unknown]
  - Nausea [Unknown]
  - Paraesthesia [Unknown]
  - Urinary tract infection [Unknown]
  - Hypoacusis [Unknown]
  - Hypotension [Unknown]

NARRATIVE: CASE EVENT DATE: 20181017
